FAERS Safety Report 8743775 (Version 2)
Quarter: 2012Q4

REPORT INFORMATION
  Report Type: 
  Country: FI (occurrence: FI)
  Receive Date: 20120824
  Receipt Date: 20120907
  Transmission Date: 20130627
  Serious: Yes (Other)
  Sender: FDA-Public Use
  Company Number: FI-ROCHE-799484

PATIENT
  Age: 11 None
  Sex: Female

DRUGS (1)
  1. MABTHERA [Suspect]
     Indication: IDIOPATHIC THROMBOCYTOPENIC PURPURA
     Dosage: (TOTALLY 4 INFUSIONS) Last cycle on 21/Apr/2011
     Route: 042

REACTIONS (4)
  - Hepatic enzyme increased [Recovering/Resolving]
  - Rash [Not Recovered/Not Resolved]
  - Antinuclear antibody positive [Unknown]
  - Systemic lupus erythematosus rash [Recovering/Resolving]
